FAERS Safety Report 4476306-7 (Version None)
Quarter: 2004Q4

REPORT INFORMATION
  Report Type: 
  Country: None (occurrence: None)
  Receive Date: 20041016
  Receipt Date: 20041007
  Transmission Date: 20050328
  Serious: Yes (Life-Threatening, Disabling)
  Sender: FDA-Public Use
  Company Number: US-MERCK-0410USA01159

PATIENT
  Age: 76 Year
  Sex: Female

DRUGS (10)
  1. FOSAMAX [Suspect]
     Indication: OSTEOPOROSIS PROPHYLAXIS
     Route: 048
     Dates: start: 20041007
  2. AMITRIPTYLINE HYDROCHLORIDE [Concomitant]
     Route: 065
  3. CALCIUM (UNSPECIFIED) [Concomitant]
     Route: 065
  4. CLONAZEPAM [Concomitant]
     Route: 065
  5. FOLIC ACID [Concomitant]
     Route: 065
  6. FUROSEMIDE [Concomitant]
     Route: 065
  7. MOBIC [Concomitant]
     Route: 065
  8. MULTIVITAMIN [Concomitant]
     Route: 065
  9. PROTONIX [Concomitant]
     Route: 065
  10. ISOPTIN [Concomitant]
     Route: 065

REACTIONS (5)
  - DIZZINESS [None]
  - DYSPNOEA [None]
  - FEELING ABNORMAL [None]
  - MEDICATION ERROR [None]
  - STOMACH DISCOMFORT [None]
